FAERS Safety Report 13940200 (Version 1)
Quarter: 2017Q3

REPORT INFORMATION
  Report Type: Report from Study
  Country: CA (occurrence: CA)
  Receive Date: 20170906
  Receipt Date: 20170906
  Transmission Date: 20171127
  Serious: Yes (Other)
  Sender: FDA-Public Use
  Company Number: PHHY2015CA126384

PATIENT
  Sex: Male

DRUGS (1)
  1. REVOLADE [Suspect]
     Active Substance: ELTROMBOPAG
     Indication: IMMUNE THROMBOCYTOPENIC PURPURA
     Dosage: 50 MG, 1D
     Route: 048
     Dates: start: 20150526

REACTIONS (6)
  - Gastrointestinal haemorrhage [Unknown]
  - Muscle spasms [Unknown]
  - Agitation [Unknown]
  - Platelet count increased [Unknown]
  - Ill-defined disorder [Unknown]
  - Platelet count decreased [Unknown]
